FAERS Safety Report 23482779 (Version 1)
Quarter: 2024Q1

REPORT INFORMATION
  Report Type: Report from Study
  Country: US (occurrence: None)
  Receive Date: 20240205
  Receipt Date: 20240205
  Transmission Date: 20240410
  Serious: Yes (Hospitalization)
  Sender: FDA-Public Use
  Company Number: 2024A007352

PATIENT
  Sex: Female
  Weight: 111.6 kg

DRUGS (28)
  1. CALQUENCE [Suspect]
     Active Substance: ACALABRUTINIB
     Indication: Chronic lymphocytic leukaemia
     Route: 048
     Dates: start: 20230604
  2. APPLE CIDER VINEGAR [Concomitant]
     Active Substance: APPLE CIDER VINEGAR
  3. FUROSEMIDE [Concomitant]
     Active Substance: FUROSEMIDE
  4. GLIPIZIDE ER [Concomitant]
     Active Substance: GLIPIZIDE
  5. LORATADINE [Concomitant]
     Active Substance: LORATADINE
  6. METOCLOPRAMIDE [Concomitant]
     Active Substance: METOCLOPRAMIDE
  7. METHENAMINE HIPPURATE [Concomitant]
     Active Substance: METHENAMINE HIPPURATE
  8. MOMETASONE [Concomitant]
     Active Substance: MOMETASONE
  9. TRIAMCINOLONE [Concomitant]
     Active Substance: TRIAMCINOLONE
  10. BIOTIN PLUS/CALCIUM/VIT D3 [Concomitant]
  11. LEVOTHYROXINE [Concomitant]
     Active Substance: LEVOTHYROXINE\LEVOTHYROXINE SODIUM
  12. TIZANIDINE HYDROCHLORIDE [Concomitant]
     Active Substance: TIZANIDINE HYDROCHLORIDE
  13. ACETAMINOPHEN\OXYCODONE HYDROCHLORIDE [Concomitant]
     Active Substance: ACETAMINOPHEN\OXYCODONE HYDROCHLORIDE
  14. ATORVASTATIN CALCIUM [Concomitant]
     Active Substance: ATORVASTATIN CALCIUM
  15. CLOBETASOL PROPIONATE [Concomitant]
     Active Substance: CLOBETASOL PROPIONATE
  16. LANSOPRAZOLE,ZOLPIDEM TARTRATE [Concomitant]
  17. ERGOCALCIFEROL [Concomitant]
     Active Substance: ERGOCALCIFEROL
  18. JARDIANCE [Concomitant]
     Active Substance: EMPAGLIFLOZIN
  19. NITROGLYCERIN [Concomitant]
     Active Substance: NITROGLYCERIN
  20. OXYCODONE HYDROCHLORIDE [Concomitant]
     Active Substance: OXYCODONE HYDROCHLORIDE
  21. DOXYCYCLINE HYCLATE [Concomitant]
     Active Substance: DOXYCYCLINE HYCLATE
  22. VALSARTAN [Concomitant]
     Active Substance: VALSARTAN
  23. ALBUTEROL SULFATE [Concomitant]
     Active Substance: ALBUTEROL SULFATE
  24. TRELEGY ELLIPTA [Concomitant]
     Active Substance: FLUTICASONE FUROATE\UMECLIDINIUM BROMIDE\VILANTEROL TRIFENATATE
  25. LORAZEPAM [Concomitant]
     Active Substance: LORAZEPAM
  26. POTASSIUM CHLORIDE [Concomitant]
     Active Substance: POTASSIUM CHLORIDE
  27. ELIQUIS [Concomitant]
     Active Substance: APIXABAN
  28. CARDIZEM CD [Concomitant]
     Active Substance: DILTIAZEM HYDROCHLORIDE

REACTIONS (2)
  - Heart rate increased [Unknown]
  - Pneumonia [Unknown]
